FAERS Safety Report 6171634-1 (Version None)
Quarter: 2009Q2

REPORT INFORMATION
  Report Type: 
  Country: None (occurrence: None)
  Receive Date: 20090424
  Receipt Date: 20081205
  Transmission Date: 20091009
  Serious: No
  Sender: FDA-Public Use
  Company Number: SPV1-2008-02532

PATIENT
  Age: 27 Year
  Sex: Male
  Weight: 94.3 kg

DRUGS (4)
  1. ADDERALL 10 [Suspect]
     Indication: ATTENTION DEFICIT/HYPERACTIVITY DISORDER
     Dosage: ORAL
     Route: 048
  2. VYVANSE [Suspect]
     Indication: ATTENTION DEFICIT/HYPERACTIVITY DISORDER
     Dosage: 70 MG, ORAL
     Route: 048
     Dates: start: 20080101
  3. RISPERDAL [Concomitant]
  4. ZYPREXA [Concomitant]

REACTIONS (1)
  - HYPERHIDROSIS [None]
